FAERS Safety Report 5475355-X (Version None)
Quarter: 2007Q4

REPORT INFORMATION
  Report Type: 
  Country: None (occurrence: None)
  Receive Date: 20071001
  Receipt Date: 20070927
  Transmission Date: 20080405
  Serious: Yes (Life-Threatening, Other)
  Sender: FDA-Public Use
  Company Number: 2007SP016930

PATIENT
  Age: 74 Year
  Sex: Male
  Weight: 81.8 kg

DRUGS (4)
  1. INTRON A [Suspect]
     Indication: MALIGNANT MELANOMA
     Dosage: 10 MIU; TIW; SC
     Route: 058
     Dates: start: 20051101, end: 20060906
  2. HYDROCHLOROTHIAZIDE [Concomitant]
  3. NAPROSYN [Concomitant]
  4. ASPIRIN [Concomitant]

REACTIONS (3)
  - FATIGUE [None]
  - ROAD TRAFFIC ACCIDENT [None]
  - SOMNOLENCE [None]
